FAERS Safety Report 6464292-X (Version None)
Quarter: 2009Q4

REPORT INFORMATION
  Report Type: 
  Country: None (occurrence: None)
  Receive Date: 20091130
  Receipt Date: 20091130
  Transmission Date: 20100525
  Serious: Yes (Hospitalization)
  Sender: FDA-Public Use
  Company Number: None

PATIENT
  Age: 51 Year
  Sex: Female
  Weight: 71.8 kg

DRUGS (2)
  1. ESTRADIOL [Suspect]
     Indication: HORMONE REPLACEMENT THERAPY
     Dosage: 0.05MG WEEKLY TOPICAL
     Route: 061
     Dates: start: 20091117
  2. ESTRADIOL [Suspect]
     Indication: HYSTERECTOMY
     Dosage: 0.05MG WEEKLY TOPICAL
     Route: 061
     Dates: start: 20091117

REACTIONS (1)
  - PULMONARY EMBOLISM [None]
